FAERS Safety Report 9522338 (Version 2)
Quarter: 2013Q4

REPORT INFORMATION
  Report Type: Spontaneous
  Country: BR (occurrence: BR)
  Receive Date: 20130913
  Receipt Date: 20131126
  Transmission Date: 20140711
  Serious: Yes (Other)
  Sender: FDA-Public Use
  Company Number: BR-JNJFOC-20130903678

PATIENT
  Sex: Female
  Weight: 59 kg

DRUGS (2)
  1. REMICADE [Suspect]
     Indication: PSORIASIS
     Route: 042
     Dates: start: 2008
  2. LEVOTHYROXINE SODIUM [Concomitant]
     Indication: THYROID DISORDER
     Route: 065
     Dates: start: 2005

REACTIONS (5)
  - Glucose tolerance impaired [Recovered/Resolved]
  - Condition aggravated [Unknown]
  - Rash [Not Recovered/Not Resolved]
  - Wound haemorrhage [Not Recovered/Not Resolved]
  - Drug effect decreased [Unknown]
